FAERS Safety Report 7651809-2 (Version None)
Quarter: 2011Q3

REPORT INFORMATION
  Report Type: 
  Country: None (occurrence: None)
  Receive Date: 20110803
  Receipt Date: 20110726
  Transmission Date: 20111222
  Serious: Yes (Other)
  Sender: FDA-Public Use
  Company Number: AR-BRISTOL-MYERS SQUIBB COMPANY-14751002

PATIENT
  Age: 62 Year
  Sex: Female

DRUGS (10)
  1. GLYBURIDE [Concomitant]
     Dosage: 2006-03JUN09 05JUN09-CONT
     Dates: start: 20060101
  2. DIPYRONE [Concomitant]
     Dosage: 05JUN-08JUN09.
     Dates: start: 20090603
  3. METFORMIN HCL [Suspect]
     Dosage: 2006-03JUN09 05JUN09-CONT
     Dates: start: 20060101
  4. ATENOLOL [Concomitant]
     Dosage: 2005-03JUN09 05JUN09-CONT
     Dates: start: 20050101
  5. ENOXAPARIN [Suspect]
     Indication: THROMBOSIS PROPHYLAXIS
     Dosage: INJECTION  1 NUMBER
     Route: 058
     Dates: start: 20090604, end: 20090609
  6. LOSARTAN POTASSIUM [Concomitant]
     Dosage: 2005-03JUN09 05JUN09-CONT
     Dates: start: 20050101
  7. PLACEBO [Suspect]
     Indication: THROMBOSIS PROPHYLAXIS
     Dosage: WITH APIXABAN:04JUN09-04JUL09 (PO) WITH ENOXAPARIN:04JUN09-09JUN09(SC)
     Dates: start: 20090604, end: 20090101
  8. METOCLOPRAMIDE [Concomitant]
     Dosage: 05JUN-08JUN09.
     Dates: start: 20090603
  9. LEVOFLOXACIN [Suspect]
     Dates: start: 20090610
  10. ALPRAZOLAM [Concomitant]
     Dosage: SUSPENDED
     Dates: start: 20060101

REACTIONS (1)
  - HEPATITIS TOXIC [None]
